FAERS Safety Report 4515027-9 (Version None)
Quarter: 2004Q4

REPORT INFORMATION
  Report Type: 
  Country: None (occurrence: None)
  Receive Date: 20041129
  Receipt Date: 20041129
  Transmission Date: 20050328
  Serious: Yes (Other)
  Sender: FDA-Public Use
  Company Number: None

PATIENT
  Age: 46 Year
  Sex: Female
  Weight: 68.0396 kg

DRUGS (2)
  1. LISINOPRIL [Suspect]
     Indication: HYPERTENSION
     Dosage: 10 MG  QDAY  ORAL
     Route: 048
     Dates: start: 20041001, end: 20041128
  2. ZOLOFT [Suspect]
     Indication: DEPRESSION
     Dosage: 100 MG  QDAY  ORAL
     Route: 048
     Dates: start: 19980101, end: 20041128

REACTIONS (1)
  - MOOD SWINGS [None]
